FAERS Safety Report 7231431-2 (Version None)
Quarter: 2011Q1

REPORT INFORMATION
  Report Type: 
  Country: None (occurrence: None)
  Receive Date: 20110118
  Receipt Date: 20110110
  Transmission Date: 20110831
  Serious: Yes (Other)
  Sender: FDA-Public Use
  Company Number: GR-MILLENNIUM PHARMACEUTICALS, INC.-2010-06436

PATIENT

DRUGS (3)
  1. DEXAMETHASONE [Suspect]
     Indication: MULTIPLE MYELOMA
     Route: 065
  2. ADRIAMYCIN PFS [Suspect]
     Indication: MULTIPLE MYELOMA
     Route: 065
  3. VELCADE [Suspect]
     Indication: MULTIPLE MYELOMA
     Route: 065

REACTIONS (1)
  - METABOLIC DISORDER [None]
